FAERS Safety Report 11114858 (Version 1)
Quarter: 2015Q2

REPORT INFORMATION
  Report Type: Spontaneous
  Country: NL (occurrence: None)
  Receive Date: 20150513
  Receipt Date: 20150513
  Transmission Date: 20150821
  Serious: Yes (Hospitalization)
  Sender: FDA-Public Use
  Company Number: FK201501973

PATIENT
  Age: 65 Year
  Sex: Female
  Weight: 71 kg

DRUGS (2)
  1. OXALIPLATIN. [Suspect]
     Active Substance: OXALIPLATIN
     Indication: GASTRIC CANCER
     Dosage: 1 IN 3 WK
     Route: 042
     Dates: start: 20150123, end: 20150305
  2. CAPECITABINE (CAPECITABINE) (CAPECITABINE) [Concomitant]
     Active Substance: CAPECITABINE

REACTIONS (5)
  - Bronchospasm [None]
  - Asthenia [None]
  - Eyelid ptosis [None]
  - Tremor [None]
  - Dysarthria [None]

NARRATIVE: CASE EVENT DATE: 20150305
